FAERS Safety Report 16059438 (Version 1)
Quarter: 2019Q1

REPORT INFORMATION
  Report Type: Spontaneous
  Country: US (occurrence: US)
  Receive Date: 20190311
  Receipt Date: 20190311
  Transmission Date: 20190418
  Serious: No
  Sender: FDA-Public Use
  Company Number: US-GALDERMA-US18027448

PATIENT
  Age: 57 Year
  Sex: Female

DRUGS (2)
  1. NEUTROGENA FACE WASH [Concomitant]
     Indication: PRODUCT USED FOR UNKNOWN INDICATION
  2. TRI-LUMA [Suspect]
     Active Substance: FLUOCINOLONE ACETONIDE\HYDROQUINONE\TRETINOIN
     Indication: CHLOASMA
     Route: 061
     Dates: start: 20180720, end: 20180724

REACTIONS (9)
  - Dermatitis [Recovered/Resolved]
  - Condition aggravated [Unknown]
  - Rash papular [Recovered/Resolved]
  - Blister [Recovered/Resolved]
  - Drug ineffective [Not Recovered/Not Resolved]
  - Skin irritation [Recovered/Resolved]
  - Skin burning sensation [Recovered/Resolved]
  - Pruritus [Recovered/Resolved]
  - Skin exfoliation [Recovered/Resolved]

NARRATIVE: CASE EVENT DATE: 201807
